FAERS Safety Report 4599004-8 (Version None)
Quarter: 2005Q1

REPORT INFORMATION
  Report Type: 
  Country: None (occurrence: None)
  Receive Date: 20050302
  Receipt Date: 20050215
  Transmission Date: 20050727
  Serious: Yes (Hospitalization)
  Sender: FDA-Public Use
  Company Number: S05-SWE-00829-01

PATIENT
  Age: 57 Year

DRUGS (6)
  1. CITALOPRAM HYDROBROMIDE [Suspect]
     Indication: DEPRESSION
     Dates: start: 20040922, end: 20041026
  2. CITALOPRAM HYDROBROMIDE [Suspect]
     Indication: DEPRESSION
     Dosage: 20 MG QD
     Dates: start: 20040922, end: 20041026
  3. STESOLID (DIAZEPAM) [Concomitant]
  4. ZINACEF [Concomitant]
  5. ALVEDON (PARACETAMOL) [Concomitant]
  6. TRAMADOL HCL [Concomitant]

REACTIONS (6)
  - ARTHRALGIA [None]
  - LARGE INTESTINAL ULCER [None]
  - LARGE INTESTINE PERFORATION [None]
  - LEUKOCYTOCLASTIC VASCULITIS [None]
  - PANCREATITIS [None]
  - PYODERMA GANGRENOSUM [None]
